FAERS Safety Report 11290559 (Version 1)
Quarter: 2015Q3

REPORT INFORMATION
  Report Type: Spontaneous
  Country: GR (occurrence: None)
  Receive Date: 20150720
  Receipt Date: 20150720
  Transmission Date: 20151125
  Serious: Yes (Death)
  Sender: FDA-Public Use
  Company Number: 2015GR0402

PATIENT
  Sex: Male

DRUGS (1)
  1. KEPIVANCE [Suspect]
     Active Substance: PALIFERMIN
     Indication: STOMATITIS

REACTIONS (1)
  - Respiratory tract infection [None]
